FAERS Safety Report 8870561 (Version 3)
Quarter: 2013Q4

REPORT INFORMATION
  Report Type: Spontaneous
  Country: US (occurrence: None)
  Receive Date: 20120426
  Receipt Date: 20131226
  Transmission Date: 20140711
  Serious: Yes (Other)
  Sender: FDA-Public Use
  Company Number: PHEH2012US002863

PATIENT
  Age: 65 Year
  Sex: Female

DRUGS (3)
  1. GILENYA [Suspect]
     Indication: MULTIPLE SCLEROSIS
     Route: 048
     Dates: start: 201105
  2. FISH OIL (FISH OIL) [Concomitant]
  3. VITAMIN D (ERGOCALCIFEROL) [Concomitant]

REACTIONS (3)
  - Depression [None]
  - Inappropriate schedule of drug administration [None]
  - Drug prescribing error [None]
